FAERS Safety Report 13211013 (Version 1)
Quarter: 2017Q1

REPORT INFORMATION
  Report Type: Spontaneous
  Country: US (occurrence: US)
  Receive Date: 20170209
  Receipt Date: 20170209
  Transmission Date: 20170428
  Serious: No
  Sender: FDA-Public Use
  Company Number: US-ALLERGAN-1660344US

PATIENT
  Sex: Female

DRUGS (3)
  1. RADIESSE [Suspect]
     Active Substance: TRIBASIC CALCIUM PHOSPHATE
     Indication: PRODUCT USED FOR UNKNOWN INDICATION
  2. BOTOX COSMETIC [Suspect]
     Active Substance: ONABOTULINUMTOXINA
     Indication: SKIN WRINKLING
     Dosage: 60 UNITS, SINGLE
     Route: 030
     Dates: start: 20160526, end: 20160526
  3. BOTOX COSMETIC [Suspect]
     Active Substance: ONABOTULINUMTOXINA
     Indication: SKIN WRINKLING

REACTIONS (4)
  - Lethargy [Not Recovered/Not Resolved]
  - Headache [Not Recovered/Not Resolved]
  - Arthralgia [Not Recovered/Not Resolved]
  - Influenza [Not Recovered/Not Resolved]

NARRATIVE: CASE EVENT DATE: 20160608
